FAERS Safety Report 5684710-4 (Version None)
Quarter: 2008Q1

REPORT INFORMATION
  Report Type: 
  Country: None (occurrence: None)
  Receive Date: 20080328
  Receipt Date: 20070806
  Transmission Date: 20080703
  Serious: Yes (Hospitalization, Other)
  Sender: FDA-Public Use
  Company Number: US-BRISTOL-MYERS SQUIBB COMPANY-13853684

PATIENT
  Age: 60 Year
  Sex: Male

DRUGS (4)
  1. ERBITUX [Suspect]
     Indication: COLON CANCER METASTATIC
     Dosage: DOSE REDUCED FROM 250MG/M2 TO 150MG/M2
     Route: 042
     Dates: start: 20061219, end: 20070725
  2. WELLBUTRIN [Concomitant]
  3. LISINOPRIL [Concomitant]
  4. LITHIUM CARBONATE [Concomitant]

REACTIONS (6)
  - BACTERIAL INFECTION [None]
  - CATHETER RELATED INFECTION [None]
  - PRURITUS [None]
  - PSEUDOMONAS INFECTION [None]
  - RASH [None]
  - SKIN ULCER [None]
